FAERS Safety Report 21244545 (Version 2)
Quarter: 2022Q3

REPORT INFORMATION
  Report Type: Spontaneous
  Country: CN (occurrence: CN)
  Receive Date: 20220823
  Receipt Date: 20220825
  Transmission Date: 20221026
  Serious: Yes (Hospitalization, Disabling, Other)
  Sender: FDA-Public Use
  Company Number: CN-BRISTOL-MYERS SQUIBB COMPANY-2022-090810

PATIENT
  Age: 68 Year
  Sex: Female
  Weight: 60 kg

DRUGS (2)
  1. VIDAZA [Suspect]
     Active Substance: AZACITIDINE
     Indication: Acute myeloid leukaemia
     Dosage: DRUG USE-TIMES: 1, DRUG USE-DAYS:1
     Route: 058
     Dates: start: 20220808, end: 20220808
  2. OMACETAXINE MEPESUCCINATE [Concomitant]
     Active Substance: OMACETAXINE MEPESUCCINATE
     Indication: Product used for unknown indication
     Route: 065
     Dates: start: 20220808

REACTIONS (1)
  - Myelosuppression [Recovering/Resolving]

NARRATIVE: CASE EVENT DATE: 20220811
